FAERS Safety Report 9543483 (Version 1)
Quarter: 2013Q2

REPORT INFORMATION
  Report Type: Spontaneous
  Country: US (occurrence: None)
  Receive Date: 20130524
  Receipt Date: 20130524
  Transmission Date: 20140414
  Serious: Yes (Other)
  Sender: FDA-Public Use
  Company Number: PHEH2012US024526

PATIENT
  Age: 68 Year
  Sex: Male

DRUGS (11)
  1. GILENYA [Suspect]
     Route: 048
     Dates: end: 20121205
  2. BISACODYL [Concomitant]
  3. MVI (VITAMINS NOS) [Concomitant]
  4. FLOMAX ^BOEHRINGER INGELHEIM^ (TAMSULOSIN HYDROCHLORIDE) [Concomitant]
  5. STOOL SOFTENER (DOCUSATE SODIUM) [Concomitant]
  6. TAMSULOSIN [Concomitant]
  7. SENNA [Concomitant]
  8. DOCUSATE [Concomitant]
  9. CIPRO ^MILES^ (CIPROFLOXACIN HYDROCHLORIDE) [Concomitant]
  10. DUONEB (IPRATROPIUM BROMIDE, SALBUTAMOL SULFATE) [Concomitant]
  11. IBUPROFEN [Concomitant]

REACTIONS (2)
  - Macular oedema [None]
  - Visual impairment [None]
